FAERS Safety Report 23046743 (Version 1)
Quarter: 2023Q4

REPORT INFORMATION
  Report Type: Spontaneous
  Country: US (occurrence: US)
  Receive Date: 20231009
  Receipt Date: 20231009
  Transmission Date: 20240109
  Serious: No
  Sender: FDA-Public Use
  Company Number: US-Kaleo, Inc.-2023KL000024

PATIENT
  Age: 16 Year
  Sex: Male

DRUGS (1)
  1. AUVI-Q [Suspect]
     Active Substance: EPINEPHRINE
     Indication: Anaphylactic reaction
     Dates: start: 20230316, end: 20230316

REACTIONS (5)
  - Injection site haemorrhage [Unknown]
  - Heart rate increased [Unknown]
  - Blood pressure increased [Unknown]
  - Drug ineffective [Recovered/Resolved]
  - No device malfunction [Unknown]

NARRATIVE: CASE EVENT DATE: 20230316
